FAERS Safety Report 7762303-2 (Version None)
Quarter: 2011Q3

REPORT INFORMATION
  Report Type: 
  Country: None (occurrence: None)
  Receive Date: 20110919
  Receipt Date: 20110919
  Transmission Date: 20111222
  Serious: Yes (Life-Threatening, Hospitalization)
  Sender: FDA-Public Use
  Company Number: None

PATIENT
  Age: 62 Year
  Sex: Male
  Weight: 105.4 kg

DRUGS (3)
  1. DALTEPARIN SODIUM [Suspect]
     Indication: PULMONARY EMBOLISM
     Dosage: 18,000 UNITSD EVERY DAY SQ
     Route: 058
     Dates: start: 20100729, end: 20110328
  2. DALTEPARIN SODIUM [Suspect]
     Indication: DEEP VEIN THROMBOSIS
     Dosage: 18,000 UNITSD EVERY DAY SQ
     Route: 058
     Dates: start: 20100729, end: 20110328
  3. HEPARIN [Suspect]
     Dosage: DRIP PER HOUR IV
     Route: 041
     Dates: start: 20110326, end: 20110328

REACTIONS (3)
  - PULMONARY EMBOLISM [None]
  - DEEP VEIN THROMBOSIS [None]
  - THROMBOCYTOPENIA [None]
